FAERS Safety Report 19276448 (Version 1)
Quarter: 2021Q2

REPORT INFORMATION
  Report Type: Report from Study
  Country: US (occurrence: US)
  Receive Date: 20210520
  Receipt Date: 20210520
  Transmission Date: 20210717
  Serious: Yes (Other)
  Sender: FDA-Public Use
  Company Number: US-AUROBINDO-AUR-APL-2016-16147

PATIENT
  Age: 67 Year
  Sex: Female

DRUGS (1)
  1. DEXAMETHASONE SODIUM PHOSPHATE INJECTION USP 10MG/ML (SINGLEDOSE VIAL) [Suspect]
     Active Substance: DEXAMETHASONE SODIUM PHOSPHATE
     Indication: VOCAL CORD DISORDER
     Dosage: 0.1 MILLILITER
     Route: 058

REACTIONS (2)
  - Vocal cord atrophy [Recovered/Resolved]
  - Dysphonia [Recovered/Resolved]
